FAERS Safety Report 10143076 (Version 1)
Quarter: 2014Q2

REPORT INFORMATION
  Report Type: Spontaneous
  Country: US (occurrence: US)
  Receive Date: 20140430
  Receipt Date: 20140430
  Transmission Date: 20141212
  Serious: No
  Sender: FDA-Public Use
  Company Number: US-BAYER-2014-060199

PATIENT
  Age: 61 Year
  Sex: Female

DRUGS (1)
  1. MIRENA [Suspect]
     Indication: ENDOMETRIAL CANCER
     Dosage: 20 ?G/D, CONT
     Route: 015
     Dates: start: 201404

REACTIONS (6)
  - Headache [None]
  - Fatigue [None]
  - Tremor [None]
  - Dizziness [None]
  - Dizziness [None]
  - Off label use [None]
